FAERS Safety Report 18793490 (Version 1)
Quarter: 2021Q1

REPORT INFORMATION
  Report Type: Spontaneous
  Country: US (occurrence: US)
  Receive Date: 20210127
  Receipt Date: 20210127
  Transmission Date: 20210419
  Serious: Yes (Death, Hospitalization)
  Sender: FDA-Public Use
  Company Number: None

PATIENT
  Age: 40 Year
  Sex: Male
  Weight: 135 kg

DRUGS (5)
  1. PREDNISONE 250MG [Suspect]
     Active Substance: PREDNISONE
  2. VIT D [Concomitant]
     Active Substance: VITAMIN D NOS
  3. ZITHROMAX [Suspect]
     Active Substance: AZITHROMYCIN DIHYDRATE
     Indication: COVID-19 PNEUMONIA
     Dosage: ?          OTHER ROUTE:ORAL?
     Route: 048
  4. ESCITALOPRAM [Concomitant]
     Active Substance: ESCITALOPRAM OXALATE
  5. ZINC. [Concomitant]
     Active Substance: ZINC

REACTIONS (1)
  - Product label issue [None]

NARRATIVE: CASE EVENT DATE: 20201208
